FAERS Safety Report 12540835 (Version 1)
Quarter: 2016Q3

REPORT INFORMATION
  Report Type: Report from Study
  Country: US (occurrence: US)
  Receive Date: 20160708
  Receipt Date: 20160708
  Transmission Date: 20161109
  Serious: Yes (Hospitalization)
  Sender: FDA-Public Use
  Company Number: US-BIOGEN-2010BI027195

PATIENT
  Sex: Female

DRUGS (1)
  1. AVONEX [Suspect]
     Active Substance: INTERFERON BETA-1A
     Indication: MULTIPLE SCLEROSIS
     Route: 030
     Dates: start: 20080127

REACTIONS (3)
  - Spinal fracture [Recovered/Resolved]
  - Multiple sclerosis relapse [Recovered/Resolved]
  - Incision site complication [Recovered/Resolved]

NARRATIVE: CASE EVENT DATE: 2010
